FAERS Safety Report 8893405 (Version 1)
Quarter: 2012Q4

REPORT INFORMATION
  Report Type: 
  Country: US (occurrence: US)
  Receive Date: 20121107
  Receipt Date: 20121107
  Transmission Date: 20130627
  Serious: No
  Sender: FDA-Public Use
  Company Number: US-AMGEN-USASP2011053314

PATIENT
  Age: 45 Year
  Sex: Female
  Weight: 83.9 kg

DRUGS (1)
  1. ENBREL [Suspect]
     Indication: PSORIASIS
     Dosage: 50 mg, 2 times/wk

REACTIONS (7)
  - Erythema [Unknown]
  - Swelling [Unknown]
  - Muscular weakness [Unknown]
  - Hypoaesthesia [Unknown]
  - Carpal tunnel syndrome [Unknown]
  - Dry eye [Unknown]
  - Rash pruritic [Unknown]
